FAERS Safety Report 4302519-0 (Version None)
Quarter: 2004Q1

REPORT INFORMATION
  Report Type: 
  Country: None (occurrence: None)
  Receive Date: 20040220
  Receipt Date: 20040205
  Transmission Date: 20041129
  Serious: Yes (Other)
  Sender: FDA-Public Use
  Company Number: 2003113752

PATIENT
  Age: 52 Year
  Sex: Female

DRUGS (5)
  1. LIPITOR [Suspect]
     Indication: BLOOD CHOLESTEROL INCREASED
     Dates: start: 20011001, end: 20020201
  2. RIZATRIPTAN BENZOATE (RIZTRIPTAN BENZOATE) [Concomitant]
  3. BISELECT (HYDROCHLOROTHIAZIDE, BISOPROLOL FUMARATE) [Concomitant]
  4. LORATDADINE (LORATADINE) [Concomitant]
  5. ACETYLSALICYLIC ACID SRT [Concomitant]

REACTIONS (23)
  - ARTHRALGIA [None]
  - BACK PAIN [None]
  - BLINDNESS [None]
  - ECONOMIC PROBLEM [None]
  - EYE SWELLING [None]
  - FATIGUE [None]
  - HYPERSENSITIVITY [None]
  - IMMUNE SYSTEM DISORDER [None]
  - INJURY [None]
  - JOINT DISLOCATION [None]
  - MUSCLE STRAIN [None]
  - MUSCULOSKELETAL STIFFNESS [None]
  - MYALGIA [None]
  - OPTIC ISCHAEMIC NEUROPATHY [None]
  - OPTIC NERVE INFARCTION [None]
  - OPTIC NERVE INJURY [None]
  - OPTIC NEUROPATHY [None]
  - PAIN [None]
  - PAPILLOEDEMA [None]
  - TENDON DISORDER [None]
  - TENDON INJURY [None]
  - VASCULITIS [None]
  - VISUAL FIELD DEFECT [None]
